FAERS Safety Report 12587551 (Version 1)
Quarter: 2016Q3

REPORT INFORMATION
  Report Type: Spontaneous
  Country: US (occurrence: US)
  Receive Date: 20160725
  Receipt Date: 20160725
  Transmission Date: 20161109
  Serious: No
  Sender: FDA-Public Use
  Company Number: US-ASTRAZENECA-2016SE75660

PATIENT
  Age: 1024 Month
  Sex: Female
  Weight: 70.3 kg

DRUGS (18)
  1. NATURE S MADE FISH OIL [Concomitant]
     Indication: HYPOVITAMINOSIS
     Route: 048
     Dates: start: 1964
  2. VITAMIN D3 [Concomitant]
     Active Substance: CHOLECALCIFEROL
     Indication: SLEEP DISORDER
     Dosage: 5000 IU AS NEEDED AT NIGHT
     Route: 048
     Dates: start: 1964
  3. NATURES BOUNTY CRANBERRY PLUS C [Concomitant]
     Indication: HYPOVITAMINOSIS
     Dosage: 1680.0MG UNKNOWN
     Route: 048
     Dates: start: 1964
  4. TUMERIC CERCUMIN [Concomitant]
     Indication: HYPOVITAMINOSIS
     Route: 048
     Dates: start: 1964
  5. VITAMIN D3 [Concomitant]
     Active Substance: CHOLECALCIFEROL
     Indication: HYPOVITAMINOSIS
     Route: 048
     Dates: start: 1964
  6. ARIMIDEX [Suspect]
     Active Substance: ANASTROZOLE
     Indication: BREAST CANCER
     Route: 048
     Dates: start: 20160602, end: 20160629
  7. SUPER B COMPLEX [Concomitant]
     Active Substance: CYANOCOBALAMIN\DEXPANTHENOL\NIACINAMIDE\PYRIDOXINE HYDROCHLORIDE\RIBOFLAVIN 5^-PHOSPHATE SODIUM\THIAMINE HYDROCHLORIDE\VITAMIN B COMPLEX
     Indication: VITAMIN B COMPLEX DEFICIENCY
     Dosage: DAILY
     Route: 048
     Dates: start: 1964
  8. VITAMIN D3 [Concomitant]
     Active Substance: CHOLECALCIFEROL
     Indication: SLEEP DISORDER
     Route: 048
     Dates: start: 1964
  9. LECATHIN [Concomitant]
     Indication: HYPOVITAMINOSIS
     Route: 048
     Dates: start: 1964
  10. OREGANO OIL [Concomitant]
     Indication: HYPOVITAMINOSIS
     Dosage: 1 CAPSULE, FREQUENCY MOST DAYS
     Route: 048
     Dates: start: 1964
  11. VITAMIN E WITH D ALPHA [Concomitant]
     Indication: VITAMIN E DEFICIENCY
     Dosage: 1000.0IU UNKNOWN
     Route: 048
     Dates: start: 1964
  12. VITAMIN C WITH ROSE HIP [Concomitant]
     Indication: HYPOVITAMINOSIS
     Dosage: 1000 MG AS NEEDED AT NIGHT
     Route: 048
     Dates: start: 1964
  13. FOLIC ACID. [Concomitant]
     Active Substance: FOLIC ACID
     Indication: HYPOVITAMINOSIS
     Route: 048
     Dates: start: 1964
  14. VITAMIN C WITH ROSE HIP [Concomitant]
     Indication: HYPOVITAMINOSIS
     Route: 048
     Dates: start: 1964
  15. ARIMIDEX [Suspect]
     Active Substance: ANASTROZOLE
     Indication: BREAST CANCER
     Route: 048
     Dates: start: 20160630
  16. NATURES BEST CALCIUM WITH D3 AND MAGNESIUM [Concomitant]
     Indication: HYPOVITAMINOSIS
     Route: 048
     Dates: start: 1964
  17. VITAMIN D3 [Concomitant]
     Active Substance: CHOLECALCIFEROL
     Indication: HYPOVITAMINOSIS
     Dosage: 5000 IU AS NEEDED AT NIGHT
     Route: 048
     Dates: start: 1964
  18. COQ10 [Concomitant]
     Active Substance: UBIDECARENONE
     Indication: HYPOVITAMINOSIS
     Dosage: 100 OR 200 MG DAILY DEPENDING ON WHAT SHE CAN GET FROM THE WALGREENS
     Route: 048
     Dates: start: 1964

REACTIONS (1)
  - Memory impairment [Unknown]

NARRATIVE: CASE EVENT DATE: 201606
